FAERS Safety Report 6670646-9 (Version None)
Quarter: 2010Q2

REPORT INFORMATION
  Report Type: 
  Country: None (occurrence: None)
  Receive Date: 20100407
  Receipt Date: 20100322
  Transmission Date: 20101027
  Serious: Yes (Life-Threatening, Hospitalization, Other)
  Sender: FDA-Public Use
  Company Number: GB-BRACCO-000258

PATIENT
  Age: 69 Year
  Sex: Female
  Weight: 52 kg

DRUGS (5)
  1. ORAMORPH SR [Concomitant]
     Indication: BACK PAIN
     Dosage: AS NECESSARY
     Route: 048
  2. ATENOLOL [Concomitant]
     Indication: HYPERTENSION
     Route: 048
  3. MULTIHANCE [Suspect]
     Indication: ANGIOGRAM
     Route: 042
     Dates: start: 20100215, end: 20100215
  4. INFUMORPH [Concomitant]
     Indication: BACK PAIN
     Route: 048
  5. ATORVASTATIN [Concomitant]
     Indication: BLOOD CHOLESTEROL INCREASED
     Route: 048

REACTIONS (5)
  - COUGH [None]
  - HYPOTENSION [None]
  - PUPILS UNEQUAL [None]
  - TACHYCARDIA [None]
  - UNRESPONSIVE TO STIMULI [None]
